FAERS Safety Report 6292243-X (Version None)
Quarter: 2009Q3

REPORT INFORMATION
  Report Type: 
  Country: None (occurrence: None)
  Receive Date: 20090731
  Receipt Date: 20090723
  Transmission Date: 20100115
  Serious: Yes (Other)
  Sender: FDA-Public Use
  Company Number: US-BAYER-200918822NA

PATIENT
  Age: 29 Year
  Sex: Female
  Weight: 113 kg

DRUGS (1)
  1. MIRENA [Suspect]
     Indication: CONTRACEPTION
     Dosage: CONTINUOUS
     Route: 015
     Dates: start: 20040901

REACTIONS (6)
  - BLOOD PRESSURE INCREASED [None]
  - IUCD COMPLICATION [None]
  - PREGNANCY WITH CONTRACEPTIVE DEVICE [None]
  - STREPTOCOCCAL IDENTIFICATION TEST POSITIVE [None]
  - UTERINE RUPTURE [None]
  - VAGINAL HAEMORRHAGE [None]
